FAERS Safety Report 8849064 (Version 1)
Quarter: 2012Q4

REPORT INFORMATION
  Report Type: Spontaneous
  Country: US (occurrence: None)
  Receive Date: 20121016
  Receipt Date: 20121016
  Transmission Date: 20130627
  Serious: Yes (Other)
  Sender: FDA-Public Use
  Company Number: None

PATIENT

DRUGS (1)
  1. NAROPIN [Suspect]
     Indication: ANALGESIA
     Route: 008
     Dates: start: 20121011, end: 20121012

REACTIONS (1)
  - Drug ineffective [None]
